FAERS Safety Report 7715976-4 (Version None)
Quarter: 2011Q3

REPORT INFORMATION
  Report Type: 
  Country: None (occurrence: None)
  Receive Date: 20110822
  Receipt Date: 20110805
  Transmission Date: 20111222
  Serious: Yes (Death, Other)
  Sender: FDA-Public Use
  Company Number: 2011MA011495

PATIENT
  Age: 28 Year
  Sex: Male

DRUGS (8)
  1. CITALOPRAM HYDROBROMIDE [Suspect]
  2. METHAMPHETAMINE HYDROCHLORIDE [Suspect]
     Indication: PRODUCT USED FOR UNKNOWN INDICATION
  3. MORPHINE [Suspect]
     Indication: PRODUCT USED FOR UNKNOWN INDICATION
  4. THC [Suspect]
  5. 3,4 - METHYLENEDIOXYMETHAMPHETAMINE [Suspect]
  6. AMPHETAMINE SULFATE [Suspect]
     Indication: PRODUCT USED FOR UNKNOWN INDICATION
  7. 7-AMINOFLUNITRAZEPAM [Suspect]
     Indication: PRODUCT USED FOR UNKNOWN INDICATION
  8. CODEINE SULFATE [Suspect]
     Indication: PRODUCT USED FOR UNKNOWN INDICATION

REACTIONS (2)
  - SEROTONIN SYNDROME [None]
  - TOXICITY TO VARIOUS AGENTS [None]
